FAERS Safety Report 24183747 (Version 1)
Quarter: 2024Q3

REPORT INFORMATION
  Report Type: Report from Study
  Country: US (occurrence: US)
  Receive Date: 20240807
  Receipt Date: 20240807
  Transmission Date: 20241017
  Serious: Yes (Other)
  Sender: EISAI
  Company Number: US-Eisai-EC-2024-170675

PATIENT
  Age: 56 Year
  Sex: Male

DRUGS (2)
  1. LENVIMA [Suspect]
     Active Substance: LENVATINIB
     Indication: Hepatocellular carcinoma
     Route: 048
     Dates: start: 20240703
  2. LENVIMA [Suspect]
     Active Substance: LENVATINIB
     Route: 048

REACTIONS (5)
  - Hepatitis [Unknown]
  - Fatigue [Unknown]
  - Decreased appetite [Unknown]
  - Headache [Unknown]
  - Dysphonia [Unknown]

NARRATIVE: CASE EVENT DATE: 20240701
